FAERS Safety Report 21376514 (Version 1)
Quarter: 2022Q3

REPORT INFORMATION
  Report Type: Spontaneous
  Country: US (occurrence: None)
  Receive Date: 20220924
  Receipt Date: 20220924
  Transmission Date: 20221026
  Serious: No
  Sender: FDA-Public Use
  Company Number: None

PATIENT
  Sex: Male
  Weight: 69.9 kg

DRUGS (1)
  1. TOPOTECAN [Suspect]
     Active Substance: TOPOTECAN HYDROCHLORIDE

REACTIONS (5)
  - Platelet count decreased [None]
  - Dyspnoea [None]
  - Fatigue [None]
  - Dizziness [None]
  - Anaemia [None]

NARRATIVE: CASE EVENT DATE: 20211018
